FAERS Safety Report 15003079 (Version 1)
Quarter: 2018Q2

REPORT INFORMATION
  Report Type: Spontaneous
  Country: DE (occurrence: DE)
  Receive Date: 20180612
  Receipt Date: 20180612
  Transmission Date: 20180711
  Serious: Yes (Hospitalization)
  Sender: FDA-Public Use
  Company Number: DE-TEVA-2018-DE-903898

PATIENT
  Age: 74 Year
  Sex: Female

DRUGS (16)
  1. DEKRISTOL [Concomitant]
     Active Substance: CHOLECALCIFEROL
     Dosage: 20000 IE / WOCHE, 1
  2. DULCOLAX DRAGEES [Concomitant]
     Dosage: 1
  3. ASS PROTECT 100 [Concomitant]
     Dosage: 1
  4. ATORVASTATIN [Concomitant]
     Active Substance: ATORVASTATIN
     Dosage: 1
  5. TAMOXIFEN [Suspect]
     Active Substance: TAMOXIFEN
     Dosage: 1
     Route: 065
  6. IBUFLAM 600 MG [Concomitant]
     Dosage: NEED
  7. TORASEMID [Concomitant]
     Active Substance: TORSEMIDE
     Dosage: 1
  8. ALLOPURINOL. [Concomitant]
     Active Substance: ALLOPURINOL
     Dosage: 1X EVERY 2 DAY
  9. LYRICA [Concomitant]
     Active Substance: PREGABALIN
     Dosage: 1-0-1-0
  10. RAMIPRIL. [Concomitant]
     Active Substance: RAMIPRIL
     Dosage: 1
  11. EUTHYROX 0,175MG [Concomitant]
     Dosage: 1
  12. MAGIUM K FORTE [Concomitant]
     Dosage: 2 X 1
  13. SPIRONOLACTON AL 50 [Concomitant]
     Dosage: 1
  14. ZOPICLONE [Concomitant]
     Active Substance: ZOPICLONE
     Dosage: 1
  15. NOVAMINSULFON 500 MG [Concomitant]
     Active Substance: METAMIZOLE
     Dosage: NEED
  16. BISOPROLOL [Concomitant]
     Active Substance: BISOPROLOL
     Dosage: 1

REACTIONS (2)
  - Pulmonary embolism [Unknown]
  - Dyspnoea exertional [Unknown]
